FAERS Safety Report 25412225 (Version 2)
Quarter: 2025Q3

REPORT INFORMATION
  Report Type: Spontaneous
  Country: US (occurrence: US)
  Receive Date: 20250609
  Receipt Date: 20250702
  Transmission Date: 20251021
  Serious: No
  Sender: PFIZER
  Company Number: US-PFIZER INC-202500115239

PATIENT
  Age: 21 Year
  Sex: Female
  Weight: 76.2 kg

DRUGS (1)
  1. VELSIPITY [Suspect]
     Active Substance: ETRASIMOD ARGININE
     Indication: Colitis ulcerative
     Dosage: 2 MG, 1X/DAY
     Route: 048
     Dates: start: 20250421, end: 20250604

REACTIONS (3)
  - Nausea [Recovering/Resolving]
  - Vomiting [Recovered/Resolved]
  - Weight decreased [Recovering/Resolving]

NARRATIVE: CASE EVENT DATE: 20250507
